FAERS Safety Report 8338947 (Version 3)
Quarter: 2013Q3

REPORT INFORMATION
  Report Type: Report from Study
  Country: US (occurrence: US)
  Receive Date: 20120117
  Receipt Date: 20130927
  Transmission Date: 20140515
  Serious: Yes (Other)
  Sender: FDA-Public Use
  Company Number: US-ELI_LILLY_AND_COMPANY-US201108003466

PATIENT
  Sex: Female

DRUGS (18)
  1. TERIPARATIDE [Suspect]
     Indication: SENILE OSTEOPOROSIS
     Dosage: 20 UG, QD
     Dates: start: 201101
  2. TERIPARATIDE [Suspect]
     Dosage: 20 UG, QD
  3. TERIPARATIDE [Suspect]
     Dosage: 20 UG, QD
     Dates: end: 20120223
  4. TERIPARATIDE [Suspect]
     Dosage: 20 UG, QD
  5. INSULIN [Concomitant]
     Dosage: UNK, BID
  6. LEVETIRACETAM [Concomitant]
     Dosage: 500 MG, UNK
  7. HYDROCODONE [Concomitant]
  8. LISINOPRIL [Concomitant]
     Dosage: 10 MG, UNK
  9. OMEPRAZOLE [Concomitant]
     Dosage: 40 MG, UNK
  10. LEVOTHYROXINE [Concomitant]
  11. CLONIDINE [Concomitant]
     Dosage: 0.1 MG, UNK
  12. GLIPIZIDE ER [Concomitant]
     Dosage: 10 MG, UNK
  13. LIPITOR [Concomitant]
     Dosage: 80 MG, UNK
  14. GABAPENTIN [Concomitant]
     Dosage: 600 MG, EVERY 6 HRS
  15. SOMA [Concomitant]
     Dosage: 350 MG, PRN
  16. BUSPIRONE [Concomitant]
     Dosage: 15 MG, BID
  17. CLONAZEPAM [Concomitant]
     Dosage: 1 MG, TID
  18. VITAMIN D NOS [Concomitant]

REACTIONS (19)
  - Convulsion [Recovered/Resolved]
  - Pancreatic mass [Unknown]
  - Pancreatic carcinoma [Unknown]
  - Hepatic cirrhosis [Unknown]
  - Influenza [Not Recovered/Not Resolved]
  - Burning sensation [Unknown]
  - Blood glucose fluctuation [Unknown]
  - Fall [Unknown]
  - Lower respiratory tract infection [Unknown]
  - Pruritus [Unknown]
  - Skin discolouration [Unknown]
  - Feeling abnormal [Unknown]
  - Back pain [Unknown]
  - Injection site pain [Recovered/Resolved]
  - Hypersensitivity [Recovered/Resolved]
  - Injection site bruising [Unknown]
  - Rash [Unknown]
  - Pain [Unknown]
  - Muscle spasms [Unknown]
